FAERS Safety Report 15665835 (Version 1)
Quarter: 2018Q4

REPORT INFORMATION
  Report Type: Spontaneous
  Country: US (occurrence: US)
  Receive Date: 20181128
  Receipt Date: 20181128
  Transmission Date: 20190205
  Serious: No
  Sender: FDA-Public Use
  Company Number: US-TARO-2017TAR01090

PATIENT
  Sex: Female

DRUGS (1)
  1. CARBAMAZEPINE TABLETS CHEWABLE USP 100MG [Suspect]
     Active Substance: CARBAMAZEPINE
     Dosage: UNK

REACTIONS (3)
  - Nasopharyngitis [Unknown]
  - Oral herpes [Unknown]
  - Weight increased [Unknown]
